FAERS Safety Report 10484384 (Version 6)
Quarter: 2015Q3

REPORT INFORMATION
  Report Type: Spontaneous
  Country: US (occurrence: US)
  Receive Date: 20140930
  Receipt Date: 20150922
  Transmission Date: 20151125
  Serious: Yes (Hospitalization)
  Sender: FDA-Public Use
  Company Number: US-PFIZER INC-2014267227

PATIENT
  Age: 54 Year
  Sex: Male
  Weight: 98 kg

DRUGS (9)
  1. ALPRAZOLAM. [Concomitant]
     Active Substance: ALPRAZOLAM
     Indication: SLEEP DISORDER
     Dosage: 1 MG, UNK
     Dates: start: 2012
  2. PROPRANOLOL [Concomitant]
     Active Substance: PROPRANOLOL\PROPRANOLOL HYDROCHLORIDE
     Dosage: UNK
  3. VITAMIN D [Concomitant]
     Active Substance: CHOLECALCIFEROL
     Dosage: UNK
     Dates: start: 2011
  4. VITAMIN D2 [Concomitant]
     Active Substance: ERGOCALCIFEROL
     Dosage: 50000 IU, UNK
     Dates: start: 2011
  5. SUTENT [Suspect]
     Active Substance: SUNITINIB MALATE
     Dosage: 20 MG, CYCLIC (28 DAY ON 14 OFF)
     Dates: start: 201209
  6. TAMSULOSIN [Concomitant]
     Active Substance: TAMSULOSIN
     Dosage: 0.4 MG, UNK
     Dates: start: 2011
  7. VITAMIN C [Concomitant]
     Active Substance: ASCORBIC ACID
     Dosage: UNK
     Dates: start: 2012
  8. SUTENT [Suspect]
     Active Substance: SUNITINIB MALATE
     Indication: METASTATIC RENAL CELL CARCINOMA
     Dosage: 50 MG, CYCLIC (ONCE A DAY, 28 DAYS ON WASH OUT PERIOD AND TWO WEEKS OFF WASH OUT PERIOD)
     Route: 048
     Dates: start: 201209
  9. ESZOPICLONE. [Concomitant]
     Active Substance: ESZOPICLONE
     Indication: SLEEP DISORDER
     Dosage: 3 MG, UNK
     Dates: start: 2012

REACTIONS (24)
  - Back pain [Recovered/Resolved]
  - Pain in jaw [Not Recovered/Not Resolved]
  - Contusion [Recovered/Resolved]
  - Yellow skin [Recovered/Resolved]
  - Muscle spasms [Unknown]
  - Gingival bleeding [Not Recovered/Not Resolved]
  - Irritability [Not Recovered/Not Resolved]
  - Hair colour changes [Not Recovered/Not Resolved]
  - Dyspnoea [Not Recovered/Not Resolved]
  - Constipation [Not Recovered/Not Resolved]
  - Visual impairment [Unknown]
  - Fatigue [Not Recovered/Not Resolved]
  - Thinking abnormal [Unknown]
  - Faeces pale [Recovered/Resolved]
  - Hypoaesthesia [Unknown]
  - Muscle twitching [Unknown]
  - Impaired healing [Unknown]
  - Insomnia [Not Recovered/Not Resolved]
  - Paraesthesia [Not Recovered/Not Resolved]
  - Delusion [Unknown]
  - Faeces discoloured [Unknown]
  - Gastrooesophageal reflux disease [Not Recovered/Not Resolved]
  - Pruritus [Not Recovered/Not Resolved]
  - Diarrhoea [Not Recovered/Not Resolved]

NARRATIVE: CASE EVENT DATE: 2012
